FAERS Safety Report 5226808-0 (Version None)
Quarter: 2007Q1

REPORT INFORMATION
  Report Type: 
  Country: None (occurrence: None)
  Receive Date: 20070130
  Receipt Date: 20070112
  Transmission Date: 20070707
  Serious: Yes (Death)
  Sender: FDA-Public Use
  Company Number: 235503

PATIENT
  Age: 54 Year
  Sex: Female

DRUGS (12)
  1. HERCEPTIN [Suspect]
     Indication: BREAST CANCER METASTATIC
     Dosage: 142 MG, 1/WEEK, INTRAVENOUS
     Route: 042
     Dates: start: 20061019
  2. PACLITAXEL [Suspect]
     Indication: BREAST CANCER METASTATIC
     Dosage: 144 MG, 1/WEEK, INTRAVENOUS
     Route: 042
     Dates: start: 20061019
  3. DEXAMETHASONE TAB [Concomitant]
  4. NIMESULIDE (NIMESULIDE) [Concomitant]
  5. GRANISETRON (GRANISETRON HYDROCHLORIDE) [Concomitant]
  6. METOCLOPRAMIDE (METOCLOPRAMIDE HYDROCHLORIDE) [Concomitant]
  7. LORAZEPAM [Concomitant]
  8. MIRTAZAPINE [Concomitant]
  9. FLUVOXAMINE MALEATE [Concomitant]
  10. DICLOFENAC SODIUM [Concomitant]
  11. TANTUM [Concomitant]
  12. CLOTRIMAZOLE [Concomitant]

REACTIONS (12)
  - ANURIA [None]
  - CARDIO-RESPIRATORY ARREST [None]
  - DEVICE RELATED INFECTION [None]
  - GENERALISED OEDEMA [None]
  - NEUTROPENIA [None]
  - NO THERAPEUTIC RESPONSE [None]
  - PAIN [None]
  - PAIN IN EXTREMITY [None]
  - RESTLESSNESS [None]
  - SEPTIC SHOCK [None]
  - STAPHYLOCOCCAL INFECTION [None]
  - SWELLING FACE [None]
